FAERS Safety Report 10607327 (Version 1)
Quarter: 2014Q4

REPORT INFORMATION
  Report Type: Spontaneous
  Country: US (occurrence: None)
  Receive Date: 20141124
  Receipt Date: 20141124
  Transmission Date: 20150529
  Serious: Yes (Hospitalization)
  Sender: FDA-Public Use
  Company Number: None

PATIENT
  Age: 23 Year
  Sex: Female
  Weight: 54.59 kg

DRUGS (2)
  1. DILANTIN [Suspect]
     Active Substance: PHENYTOIN
     Indication: SEIZURE
     Dosage: CHRONIC
     Route: 048
  2. AZITHROMYCIN [Concomitant]
     Active Substance: AZITHROMYCIN ANHYDROUS

REACTIONS (6)
  - Headache [None]
  - Anticonvulsant drug level above therapeutic [None]
  - Dizziness [None]
  - Toxicity to various agents [None]
  - Asthenia [None]
  - Sinus headache [None]

NARRATIVE: CASE EVENT DATE: 20140609
